FAERS Safety Report 20452276 (Version 3)
Quarter: 2022Q3

REPORT INFORMATION
  Report Type: Report from Study
  Country: US (occurrence: US)
  Receive Date: 20220210
  Receipt Date: 20220810
  Transmission Date: 20221027
  Serious: Yes (Other)
  Sender: FDA-Public Use
  Company Number: US-ABBVIE-22K-163-4266923-00

PATIENT
  Sex: Male

DRUGS (1)
  1. IMBRUVICA [Suspect]
     Active Substance: IBRUTINIB
     Indication: Chronic lymphocytic leukaemia
     Route: 048
     Dates: start: 201901

REACTIONS (11)
  - Cataract [Unknown]
  - Peripheral swelling [Unknown]
  - Memory impairment [Unknown]
  - Platelet count increased [Unknown]
  - Abdominal distension [Unknown]
  - Frustration tolerance decreased [Unknown]
  - Fear [Unknown]
  - Nail infection [Unknown]
  - Hypertension [Unknown]
  - Platelet count decreased [Unknown]
  - Onychoclasis [Unknown]
